FAERS Safety Report 7394962-0 (Version None)
Quarter: 2011Q2

REPORT INFORMATION
  Report Type: 
  Country: None (occurrence: None)
  Receive Date: 20110405
  Receipt Date: 20110328
  Transmission Date: 20111010
  Serious: Yes (Other)
  Sender: FDA-Public Use
  Company Number: JP-ROCHE-746486

PATIENT
  Sex: Male
  Weight: 57 kg

DRUGS (19)
  1. OXALIPLATIN [Suspect]
     Route: 041
     Dates: start: 20100706, end: 20100706
  2. OXALIPLATIN [Suspect]
     Route: 041
     Dates: start: 20101109, end: 20101109
  3. BEVACIZUMAB [Suspect]
     Route: 041
     Dates: start: 20101109, end: 20101109
  4. CAPECITABINE [Suspect]
     Indication: COLON CANCER
     Route: 048
     Dates: start: 20100603, end: 20100617
  5. CAPECITABINE [Suspect]
     Route: 048
     Dates: start: 20100706, end: 20100720
  6. CAPECITABINE [Suspect]
     Route: 048
     Dates: start: 20100727, end: 20100810
  7. CAPECITABINE [Suspect]
     Route: 048
     Dates: start: 20101019, end: 20101102
  8. MAGMITT [Concomitant]
     Dosage: PERORAL AGENT
     Route: 048
  9. BEVACIZUMAB [Suspect]
     Route: 041
     Dates: start: 20100727, end: 20100727
  10. URSO 250 [Concomitant]
     Dosage: PERORAL AGENT
     Route: 048
  11. TEPRENONE [Concomitant]
     Route: 048
  12. BEVACIZUMAB [Suspect]
     Indication: COLON CANCER
     Route: 041
     Dates: start: 20100603, end: 20100603
  13. OXALIPLATIN [Suspect]
     Route: 041
     Dates: start: 20100727, end: 20100727
  14. BEVACIZUMAB [Suspect]
     Route: 041
     Dates: start: 20100706, end: 20100706
  15. OXALIPLATIN [Suspect]
     Indication: COLON CANCER
     Route: 041
     Dates: start: 20100603, end: 20100603
  16. GLIMICRON [Concomitant]
     Route: 048
  17. ALDACTONE [Concomitant]
     Dosage: PERORAL AGENT
     Route: 048
  18. BEVACIZUMAB [Suspect]
     Route: 041
     Dates: start: 20101019, end: 20101019
  19. CAPECITABINE [Suspect]
     Route: 048
     Dates: start: 20101109, end: 20101116

REACTIONS (1)
  - DUODENAL ULCER [None]
